FAERS Safety Report 16738325 (Version 2)
Quarter: 2019Q3

REPORT INFORMATION
  Report Type: Spontaneous
  Country: JP (occurrence: JP)
  Receive Date: 20190825
  Receipt Date: 20190916
  Transmission Date: 20191005
  Serious: Yes (Hospitalization, Other)
  Sender: FDA-Public Use
  Company Number: JP-AMGEN-JPNSP2019062122

PATIENT
  Age: 55 Year
  Sex: Female
  Weight: 46.5 kg

DRUGS (6)
  1. FOSRENOL [Concomitant]
     Active Substance: LANTHANUM CARBONATE
     Dosage: 1000 MG, EVERYDAY
     Route: 048
  2. OXAROL [Suspect]
     Active Substance: MAXACALCITOL
     Dosage: 2.5 MICROGRAM, 3 TIMES/WK (2.5 UG, Q56H)
     Route: 065
     Dates: start: 20181015
  3. P-TOL [SUCROFERRIC OXYHYDROXIDE] [Concomitant]
     Dosage: 1000 MILLIGRAM, QD
     Route: 048
  4. PARSABIV [Suspect]
     Active Substance: ETELCALCETIDE HYDROCHLORIDE
     Indication: HYPERPARATHYROIDISM SECONDARY
     Dosage: 5 MILLIGRAM, 3 TIMES/WK (5 MG, Q56H)
     Route: 010
     Dates: start: 20180305
  5. OXAROL [Suspect]
     Active Substance: MAXACALCITOL
     Indication: PRODUCT USED FOR UNKNOWN INDICATION
     Dosage: 2.5 MICROGRAM, 3 TIMES/WK (2.5 UG, Q56H)
     Route: 065
     Dates: end: 20180518
  6. OXAROL [Suspect]
     Active Substance: MAXACALCITOL
     Dosage: 5 MICROGRAM, 3 TIMES/WK (5 UG, Q56H)
     Route: 065
     Dates: start: 20180521, end: 20181012

REACTIONS (5)
  - Angina unstable [Recovered/Resolved]
  - Hypocalcaemia [Recovered/Resolved]
  - Angina unstable [Not Recovered/Not Resolved]
  - Shunt occlusion [Recovered/Resolved]
  - Angina unstable [Recovering/Resolving]

NARRATIVE: CASE EVENT DATE: 20180409
